FAERS Safety Report 6591437-3 (Version None)
Quarter: 2010Q1

REPORT INFORMATION
  Report Type: 
  Country: None (occurrence: None)
  Receive Date: 20100219
  Receipt Date: 20100208
  Transmission Date: 20100710
  Serious: Yes (Hospitalization, Other)
  Sender: FDA-Public Use
  Company Number: US-ELI_LILLY_AND_COMPANY-US200910007979

PATIENT
  Sex: Female

DRUGS (4)
  1. FORTEO [Suspect]
     Indication: OSTEOPOROSIS
     Dosage: UNK, UNKNOWN
     Route: 065
     Dates: start: 20090401
  2. SYNTHROID [Concomitant]
     Indication: HYPOTHYROIDISM
  3. ESTROGEN NOS [Concomitant]
  4. PROGESTERONE [Concomitant]

REACTIONS (1)
  - OSTEOARTHRITIS [None]
